FAERS Safety Report 4525281-5 (Version None)
Quarter: 2004Q4

REPORT INFORMATION
  Report Type: 
  Country: None (occurrence: None)
  Receive Date: 20041210
  Receipt Date: 20041201
  Transmission Date: 20050328
  Serious: Yes (Life-Threatening, Hospitalization)
  Sender: FDA-Public Use
  Company Number: CIP04002438

PATIENT
  Age: 49 Year
  Sex: Female
  Weight: 60.3 kg

DRUGS (3)
  1. ACTONEL [Suspect]
     Indication: OSTEOPENIA
     Dosage: 35 MG ONCE WEEKLY, ORAL
     Route: 048
     Dates: start: 20041001, end: 20041101
  2. WELLBUTRIN [Concomitant]
  3. HYDREA [Concomitant]

REACTIONS (4)
  - ABDOMINAL PAIN [None]
  - BACK PAIN [None]
  - PAIN IN EXTREMITY [None]
  - PLATELET COUNT INCREASED [None]
